FAERS Safety Report 16808189 (Version 1)
Quarter: 2019Q3

REPORT INFORMATION
  Report Type: Other
  Country: US (occurrence: US)
  Receive Date: 20190916
  Receipt Date: 20190916
  Transmission Date: 20191005
  Serious: Yes (Hospitalization, Other)
  Sender: FDA-Public Use
  Company Number: US-DEXPHARM-20190743

PATIENT
  Age: 27 Year
  Sex: Male

DRUGS (5)
  1. LEVETIRACETAM NON DEXCEL PRODUCT [Suspect]
     Active Substance: LEVETIRACETAM
     Indication: GENERALISED TONIC-CLONIC SEIZURE
     Route: 041
  2. HEPARIN [Concomitant]
     Active Substance: HEPARIN SODIUM
     Indication: PROPHYLAXIS
     Route: 058
  3. DOCUSATE [Concomitant]
     Active Substance: DOCUSATE
  4. LEVETIRACETAM NON DEXCEL PRODUCT [Suspect]
     Active Substance: LEVETIRACETAM
     Indication: GENERALISED TONIC-CLONIC SEIZURE
     Dosage: TWICE DAILY
     Route: 041
  5. LORAZEPAM NON DEXCEL PRODUCT [Suspect]
     Active Substance: LORAZEPAM
     Indication: GENERALISED TONIC-CLONIC SEIZURE
     Route: 041

REACTIONS (1)
  - Rhabdomyolysis [Recovered/Resolved]
